FAERS Safety Report 25531888 (Version 2)
Quarter: 2025Q3

REPORT INFORMATION
  Report Type: Report from Study
  Country: US (occurrence: US)
  Receive Date: 20250709
  Receipt Date: 20250904
  Transmission Date: 20251021
  Serious: No
  Sender: SUNOVION
  Company Number: US-SMPA-2025SPA007543AA

PATIENT
  Age: 63 Year
  Sex: Male

DRUGS (13)
  1. ORGOVYX [Suspect]
     Active Substance: RELUGOLIX
     Indication: Prostate cancer
     Dosage: 360 MG, SINGLE
     Route: 048
     Dates: start: 20250408, end: 20250408
  2. ORGOVYX [Suspect]
     Active Substance: RELUGOLIX
     Dosage: 120 MG, QD
     Route: 048
     Dates: start: 20250409
  3. AMIODARONE HYDROCHLORIDE [Concomitant]
     Active Substance: AMIODARONE HYDROCHLORIDE
  4. ASCORBIC ACID [Concomitant]
     Active Substance: ASCORBIC ACID
  5. Barley grass [Concomitant]
  6. ELIQUIS [Concomitant]
     Active Substance: APIXABAN
  7. FENBENDAZOLE [Concomitant]
     Active Substance: FENBENDAZOLE
  8. IVERMECTIN [Concomitant]
     Active Substance: IVERMECTIN
  9. METOPROLOL SUCCINATE [Concomitant]
     Active Substance: METOPROLOL SUCCINATE
  10. DIETARY SUPPLEMENT\HERBALS\MILK THISTLE [Concomitant]
     Active Substance: MILK THISTLE
  11. Soursop graviola gummies [Concomitant]
  12. Vitamin B17 [Concomitant]
  13. VITAMIN D [Concomitant]
     Active Substance: VITAMIN D NOS

REACTIONS (2)
  - Hot flush [Unknown]
  - Product dose omission in error [Recovered/Resolved]
